FAERS Safety Report 15720074 (Version 7)
Quarter: 2019Q2

REPORT INFORMATION
  Report Type: Report from Study
  Country: DE (occurrence: DE)
  Receive Date: 20181213
  Receipt Date: 20190624
  Transmission Date: 20190711
  Serious: Yes (Hospitalization)
  Sender: FDA-Public Use
  Company Number: DE-VERTEX PHARMACEUTICALS-2018-009204

PATIENT
  Age: 12 Year
  Sex: Male
  Weight: 39 kg

DRUGS (17)
  1. TAURIN [Concomitant]
     Indication: LIVER DISORDER
     Dosage: UNK
     Route: 048
     Dates: start: 20180628
  2. ACTRAPID [Concomitant]
     Active Substance: INSULIN HUMAN
     Indication: CYSTIC FIBROSIS RELATED DIABETES
     Dosage: UNK
     Route: 058
     Dates: start: 20170810
  3. KREON [Concomitant]
     Active Substance: PANCRELIPASE
     Indication: PANCREATIC FAILURE
     Dosage: UNK
     Route: 048
     Dates: start: 20180624
  4. VITAMIN D                          /00107901/ [Concomitant]
     Active Substance: ERGOCALCIFEROL
     Indication: PROPHYLAXIS
     Dosage: UNK
     Route: 048
     Dates: start: 20080624
  5. NACL [Concomitant]
     Active Substance: SODIUM CHLORIDE
     Indication: CYSTIC FIBROSIS LUNG
     Dosage: UNK
     Route: 055
     Dates: start: 20110207
  6. NOVORAPID [Concomitant]
     Active Substance: INSULIN ASPART
     Indication: CYSTIC FIBROSIS RELATED DIABETES
     Dosage: UNK
     Route: 058
     Dates: start: 20170810
  7. VX-661/VX-770 [Suspect]
     Active Substance: IVACAFTOR\TEZACAFTOR
     Indication: CYSTIC FIBROSIS
     Dosage: TEZACAFTOR 100MG QD/ IVACAFTOR 150MG Q12H
     Route: 048
     Dates: start: 20181030, end: 20181104
  8. VITAMIN A                          /00056001/ [Concomitant]
     Active Substance: RETINOL
     Indication: HYPOVITAMINOSIS
     Dosage: UNK
     Route: 048
     Dates: start: 20080624
  9. URSODEOXYCHOLIC ACID [Concomitant]
     Active Substance: URSODIOL
     Indication: LIVER DISORDER
     Dosage: UNK
     Route: 048
     Dates: start: 20080624
  10. CALCIUM [Concomitant]
     Active Substance: CALCIUM
     Indication: OSTEOPOROSIS
     Dosage: UNK
     Route: 048
     Dates: start: 20160607
  11. PULMOZYME [Concomitant]
     Active Substance: DORNASE ALFA
     Indication: INCREASED VISCOSITY OF BRONCHIAL SECRETION
     Dosage: UNK
     Route: 055
     Dates: start: 20080624
  12. VITAMIN E                          /00110501/ [Concomitant]
     Active Substance: TOCOPHEROL
     Indication: PROPHYLAXIS
     Dosage: UNK
     Route: 048
     Dates: start: 20080624
  13. SALBUTAMOL [Concomitant]
     Active Substance: ALBUTEROL
     Indication: BRONCHOSPASM
     Dosage: UNK
     Route: 055
     Dates: start: 20080624
  14. INFLUENZA VACCINE [Concomitant]
     Active Substance: INFLUENZA VIRUS VACCINE
     Indication: INFLUENZA
     Dosage: UNK
     Route: 030
     Dates: start: 20181126, end: 20181126
  15. VX-445 [Suspect]
     Active Substance: INVESTIGATIONAL PRODUCT
     Indication: CYSTIC FIBROSIS
     Dosage: 200 MG, QD
     Route: 048
     Dates: start: 20181030, end: 20181105
  16. VITAMIN K [Concomitant]
     Active Substance: PHYTONADIONE
     Indication: INTERNATIONAL NORMALISED RATIO INCREASED
     Dosage: UNK
     Route: 048
     Dates: start: 20080805
  17. LANTUS [Concomitant]
     Active Substance: INSULIN GLARGINE
     Indication: CYSTIC FIBROSIS RELATED DIABETES
     Dosage: UNK
     Route: 058
     Dates: start: 20180628

REACTIONS (1)
  - Portal hypertension [Recovered/Resolved with Sequelae]

NARRATIVE: CASE EVENT DATE: 20181203
